FAERS Safety Report 14746195 (Version 2)
Quarter: 2018Q2

REPORT INFORMATION
  Report Type: Spontaneous
  Country: CA (occurrence: CA)
  Receive Date: 20180411
  Receipt Date: 20180518
  Transmission Date: 20180711
  Serious: Yes (Death)
  Sender: FDA-Public Use
  Company Number: CA-PFIZER INC-2017272922

PATIENT
  Age: 77 Year
  Sex: Female
  Weight: 71.5 kg

DRUGS (1)
  1. IBRANCE [Suspect]
     Active Substance: PALBOCICLIB
     Dosage: 125 MG ONCE DAILY, CYCLIC 21 DAYS ON AND 7 DAYS OFF (21 OUT OF 28 DAYS)
     Route: 048
     Dates: start: 201703, end: 201704

REACTIONS (2)
  - Neoplasm progression [Fatal]
  - Liver function test increased [Unknown]
